FAERS Safety Report 7423952-4 (Version None)
Quarter: 2011Q2

REPORT INFORMATION
  Report Type: 
  Country: None (occurrence: None)
  Receive Date: 20110419
  Receipt Date: 20110411
  Transmission Date: 20111010
  Serious: Yes (Death)
  Sender: FDA-Public Use
  Company Number: A0923259A

PATIENT
  Age: 83 Year
  Sex: Female

DRUGS (2)
  1. ADVAIR HFA [Suspect]
     Route: 065
     Dates: start: 20080101, end: 20110101
  2. WELLBUTRIN SR [Suspect]
     Dosage: 150MG UNKNOWN
     Route: 065
     Dates: start: 20080101, end: 20110101

REACTIONS (1)
  - DEATH [None]
